FAERS Safety Report 22031962 (Version 1)
Quarter: 2023Q1

REPORT INFORMATION
  Report Type: Spontaneous
  Country: SA (occurrence: SA)
  Receive Date: 20230224
  Receipt Date: 20230224
  Transmission Date: 20230418
  Serious: Yes (Hospitalization, Other)
  Sender: FDA-Public Use
  Company Number: SA-AUCTA-000004

PATIENT
  Age: 3 Year
  Sex: Male

DRUGS (2)
  1. DEFERASIROX [Suspect]
     Active Substance: DEFERASIROX
     Indication: Chelation therapy
     Dosage: TWICE DAILY
     Route: 048
  2. DEFERASIROX [Suspect]
     Active Substance: DEFERASIROX
     Indication: Chelation therapy
     Dosage: ONCE DAILY
     Route: 048

REACTIONS (2)
  - Duodenal ulcer perforation [Recovered/Resolved]
  - Pneumoperitoneum [Recovered/Resolved]
